FAERS Safety Report 5038681-4 (Version None)
Quarter: 2006Q2

REPORT INFORMATION
  Report Type: 
  Country: None (occurrence: None)
  Receive Date: 20060627
  Receipt Date: 20060627
  Transmission Date: 20061013
  Serious: No
  Sender: FDA-Public Use
  Company Number: None

PATIENT
  Age: 28 Year
  Sex: Female
  Weight: 78.9 kg

DRUGS (1)
  1. LACTATED RINGER'S [Suspect]

REACTIONS (1)
  - RASH [None]
